FAERS Safety Report 5466535-8 (Version None)
Quarter: 2007Q3

REPORT INFORMATION
  Report Type: 
  Country: None (occurrence: None)
  Receive Date: 20070820
  Receipt Date: 20070608
  Transmission Date: 20080115
  Serious: No
  Sender: FDA-Public Use
  Company Number: WAES 0706USA01629

PATIENT
  Age: 77 Year
  Sex: Female

DRUGS (4)
  1. JANUVIA [Suspect]
     Dosage: 100 MG/DAILY/PO
     Route: 048
     Dates: start: 20070301, end: 20070101
  2. AVANDIA [Concomitant]
  3. TOPAMAX [Concomitant]
  4. GLIPIZIDE [Concomitant]

REACTIONS (2)
  - NAUSEA [None]
  - VOMITING [None]
